FAERS Safety Report 8960275 (Version 1)
Quarter: 2012Q4

REPORT INFORMATION
  Report Type: 
  Country: FR (occurrence: FR)
  Receive Date: 20121212
  Receipt Date: 20121212
  Transmission Date: 20130627
  Serious: Yes (Hospitalization)
  Sender: FDA-Public Use
  Company Number: FR-PFIZER INC-2012308743

PATIENT
  Age: 36 Year
  Sex: Female

DRUGS (2)
  1. TAZOCILLINE [Suspect]
     Indication: PYELONEPHRITIS
     Dosage: UNK
     Dates: start: 20121006, end: 20121009
  2. GENTAMICIN ^PANPHARMA^ [Suspect]
     Indication: PYELONEPHRITIS
     Dosage: UNK
     Dates: start: 20121006, end: 20121008

REACTIONS (1)
  - Acute generalised exanthematous pustulosis [Recovered/Resolved]
